FAERS Safety Report 4724021-4 (Version None)
Quarter: 2005Q3

REPORT INFORMATION
  Report Type: 
  Country: None (occurrence: None)
  Receive Date: 20050722
  Receipt Date: 20050707
  Transmission Date: 20060218
  Serious: Yes (Disabling)
  Sender: FDA-Public Use
  Company Number: 2005-01468

PATIENT
  Age: 76 Year
  Sex: Female
  Weight: 69.1 kg

DRUGS (7)
  1. VELCADE [Suspect]
     Indication: MULTIPLE MYELOMA
     Dosage: 2.20 MG, 2/WEEK, IV BOLUS
     Route: 040
     Dates: start: 20050329, end: 20050401
  2. ANZEMET (DOLASETRON MESILATE) [Concomitant]
  3. HEPARIN [Concomitant]
  4. ZOMETA [Concomitant]
  5. DEXMETHSONE [Concomitant]
  6. DEXTROSE INFUSION 5% (GLUCOSE) [Concomitant]
  7. SODIUM CHLORIDE [Concomitant]

REACTIONS (7)
  - DIZZINESS [None]
  - ECTROPION [None]
  - EYELID OEDEMA [None]
  - EYELID PTOSIS [None]
  - JOINT SWELLING [None]
  - PAIN IN EXTREMITY [None]
  - VISUAL ACUITY REDUCED [None]
